FAERS Safety Report 6174812-0 (Version None)
Quarter: 2009Q2

REPORT INFORMATION
  Report Type: 
  Country: None (occurrence: None)
  Receive Date: 20090430
  Receipt Date: 20081117
  Transmission Date: 20091009
  Serious: No
  Sender: FDA-Public Use
  Company Number: US-ASTRAZENECA-2008UW25773

PATIENT
  Sex: Male

DRUGS (8)
  1. NEXIUM [Suspect]
     Indication: GASTROOESOPHAGEAL REFLUX DISEASE
     Dosage: 20 MG FOR 3 YEARS
     Route: 048
  2. NEXIUM [Suspect]
     Indication: GASTRITIS
     Dosage: 20 MG FOR 3 YEARS
     Route: 048
  3. NEXIUM [Suspect]
     Dosage: 40 MG FOR 2 YEARS
     Route: 048
  4. NEXIUM [Suspect]
     Dosage: 40 MG FOR 2 YEARS
     Route: 048
  5. TRIAZOLAM [Concomitant]
  6. LEXAPRO [Concomitant]
  7. MEPROBAMATE [Concomitant]
  8. COUMADIN [Concomitant]

REACTIONS (3)
  - ABDOMINAL DISCOMFORT [None]
  - DRUG EFFECT DECREASED [None]
  - WEIGHT DECREASED [None]
